FAERS Safety Report 8453850-9 (Version None)
Quarter: 2012Q2

REPORT INFORMATION
  Report Type: 
  Country: None (occurrence: None)
  Receive Date: 20120620
  Receipt Date: 20120614
  Transmission Date: 20120825
  Serious: Yes (Life-Threatening, Other)
  Sender: FDA-Public Use
  Company Number: JP-CELGENEUS-087-50794-12062594

PATIENT
  Sex: Male
  Weight: 36 kg

DRUGS (11)
  1. VIDAZA [Suspect]
     Dosage: 75 MILLIGRAM
     Route: 041
     Dates: start: 20111114, end: 20111115
  2. OMEPRAZOLE [Concomitant]
     Route: 065
     Dates: start: 20111004
  3. GLAKAY [Concomitant]
     Route: 065
     Dates: start: 20111004
  4. VIDAZA [Suspect]
     Dosage: 75 MILLIGRAM
     Route: 041
     Dates: start: 20111107, end: 20111111
  5. MAGMITT [Concomitant]
     Route: 065
     Dates: start: 20111004
  6. VIDAZA [Suspect]
     Dosage: 75 MILLIGRAM
     Route: 041
     Dates: start: 20111004, end: 20111007
  7. ALENDRONATE SODIUM [Concomitant]
     Dosage: 35 MILLIGRAM
     Route: 065
     Dates: start: 20111004
  8. PRIMOBOLAN-DEPOT INJ [Concomitant]
     Route: 065
     Dates: start: 20111004
  9. PREDNISOLONE [Concomitant]
     Route: 065
     Dates: start: 20111004
  10. METHYLCOBAL [Concomitant]
     Route: 065
     Dates: start: 20111004
  11. COTRIM [Concomitant]
     Route: 065
     Dates: start: 20111004

REACTIONS (5)
  - WHITE BLOOD CELL COUNT DECREASED [None]
  - NEUTROPHIL COUNT DECREASED [None]
  - PNEUMONIA [None]
  - PLATELET COUNT DECREASED [None]
  - ANAEMIA [None]
